FAERS Safety Report 20070295 (Version 1)
Quarter: 2021Q4

REPORT INFORMATION
  Report Type: Spontaneous
  Country: US (occurrence: US)
  Receive Date: 20211115
  Receipt Date: 20211115
  Transmission Date: 20220303
  Serious: Yes (Other)
  Sender: FDA-Public Use
  Company Number: US-GLAXOSMITHKLINE-US2021GSK235033

PATIENT
  Sex: Female

DRUGS (8)
  1. ZANTAC [Suspect]
     Active Substance: RANITIDINE HYDROCHLORIDE
     Indication: Dyspepsia
     Dosage: 150 MG BOTH
     Route: 065
     Dates: start: 200001, end: 201901
  2. ZANTAC [Suspect]
     Active Substance: RANITIDINE HYDROCHLORIDE
     Indication: Intestinal ulcer
     Dosage: 300 MG, QD
     Route: 065
     Dates: start: 200001, end: 201901
  3. ZANTAC [Suspect]
     Active Substance: RANITIDINE HYDROCHLORIDE
     Indication: Dyspepsia
     Dosage: 150 MG BOTH
     Route: 065
     Dates: start: 200001, end: 201901
  4. ZANTAC [Suspect]
     Active Substance: RANITIDINE HYDROCHLORIDE
     Indication: Intestinal ulcer
     Dosage: 300 MG, QD
     Route: 065
     Dates: start: 200001, end: 201901
  5. RANITIDINE [Suspect]
     Active Substance: RANITIDINE
     Indication: Dyspepsia
     Dosage: 150 MG BOTH
     Route: 065
     Dates: start: 200001, end: 201901
  6. RANITIDINE [Suspect]
     Active Substance: RANITIDINE
     Indication: Intestinal ulcer
     Dosage: 300 MG, QD
     Route: 065
     Dates: start: 200001, end: 201901
  7. RANITIDINE [Suspect]
     Active Substance: RANITIDINE
     Indication: Dyspepsia
     Dosage: 150 MG BOTH
     Route: 065
     Dates: start: 200001, end: 201901
  8. RANITIDINE [Suspect]
     Active Substance: RANITIDINE
     Indication: Intestinal ulcer
     Dosage: 300 MG, QD
     Route: 065
     Dates: start: 200001, end: 201901

REACTIONS (3)
  - Breast cancer [Unknown]
  - Colorectal cancer [Unknown]
  - Thyroid cancer [Unknown]
